FAERS Safety Report 19061635 (Version 1)
Quarter: 2021Q1

REPORT INFORMATION
  Report Type: Spontaneous
  Country: US (occurrence: US)
  Receive Date: 20210325
  Receipt Date: 20210325
  Transmission Date: 20210420
  Serious: Yes (Hospitalization, Disabling)
  Sender: FDA-Public Use
  Company Number: None

PATIENT
  Age: 67 Year
  Sex: Male
  Weight: 77.4 kg

DRUGS (1)
  1. REGADENOSON [Suspect]
     Active Substance: REGADENOSON

REACTIONS (5)
  - Pericardial effusion [None]
  - Seizure [None]
  - Chest pain [None]
  - Tremor [None]
  - Discomfort [None]

NARRATIVE: CASE EVENT DATE: 20210122
